FAERS Safety Report 6159686-6 (Version None)
Quarter: 2009Q2

REPORT INFORMATION
  Report Type: 
  Country: None (occurrence: None)
  Receive Date: 20090415
  Receipt Date: 20090331
  Transmission Date: 20091009
  Serious: Yes (Hospitalization)
  Sender: FDA-Public Use
  Company Number: 2009S1005771

PATIENT
  Age: 50 Year
  Sex: Female

DRUGS (1)
  1. TAMOXIFEN CITRATE [Suspect]
     Indication: BREAST CANCER METASTATIC
     Dosage: 10 MG; 3 TIMES A DAY; ORAL, 20 MG; TWICE A DAY; ORAL
     Route: 048
     Dates: start: 19840101

REACTIONS (2)
  - OPTIC ATROPHY [None]
  - RETINAL DEGENERATION [None]
